FAERS Safety Report 7806859-X (Version None)
Quarter: 2011Q4

REPORT INFORMATION
  Report Type: 
  Country: None (occurrence: None)
  Receive Date: 20111011
  Receipt Date: 20111004
  Transmission Date: 20120403
  Serious: Yes (Hospitalization, Other)
  Sender: FDA-Public Use
  Company Number: FR-PFIZER INC-2011238775

PATIENT
  Age: 87 Year
  Sex: Female

DRUGS (12)
  1. NITROGLYCERIN [Suspect]
     Indication: ANGINA PECTORIS
     Dosage: 5 MG/24H, 1 DF DAILY
     Route: 062
     Dates: end: 20110901
  2. ROSUVASTATIN CALCIUM [Concomitant]
     Indication: HYPERCHOLESTEROLAEMIA
     Dosage: UNK
  3. GAVISCON [Concomitant]
     Dosage: UNK
  4. METOPROLOL TARTRATE [Suspect]
     Indication: HYPERTENSION
     Dosage: 50 MG, DAILY
     Route: 048
  5. RAMIPRIL [Suspect]
     Indication: HYPERTENSION
     Dosage: 1.25 MG, DAILY
     Route: 048
  6. VALPROIC ACID [Concomitant]
     Indication: BIPOLAR DISORDER
     Dosage: UNK
  7. ACETYLSALICYLATE LYSINE [Concomitant]
     Dosage: UNK
  8. PARACETAMOL [Concomitant]
     Indication: PAIN
     Dosage: UNK
  9. CLONAZEPAM [Suspect]
     Dosage: 2.5 MG/ML AT 3 GTT, DAILY
     Route: 048
     Dates: end: 20110901
  10. CITALOPRAM [Concomitant]
     Indication: DEPRESSION
     Dosage: 20MG,UNK
  11. RAMIPRIL [Suspect]
     Dosage: 0.625 MG, DAILY
     Route: 048
  12. PANTOPRAZOLE [Concomitant]
     Dosage: UNK

REACTIONS (4)
  - ORTHOSTATIC HYPOTENSION [None]
  - FALL [None]
  - CEREBRAL HAEMATOMA [None]
  - BREATH SOUNDS ABNORMAL [None]
